FAERS Safety Report 17156471 (Version 2)
Quarter: 2020Q1

REPORT INFORMATION
  Report Type: Spontaneous
  Country: GB (occurrence: GB)
  Receive Date: 20191216
  Receipt Date: 20200312
  Transmission Date: 20200409
  Serious: Yes (Disabling, Other)
  Sender: FDA-Public Use
  Company Number: GB-AUROBINDO-AUR-APL-2019-104677

PATIENT
  Age: 37 Year
  Sex: Male

DRUGS (2)
  1. TERBINAFINE. [Suspect]
     Active Substance: TERBINAFINE
     Indication: NAIL INFECTION
     Dosage: 250 MILLIGRAM
     Route: 048
     Dates: start: 20160311, end: 201608
  2. TERBINAFINE. [Suspect]
     Active Substance: TERBINAFINE
     Dosage: 250 MILLIGRAM
     Route: 048
     Dates: start: 20170712

REACTIONS (5)
  - Fatigue [Recovered/Resolved]
  - Abnormal loss of weight [Unknown]
  - Tinnitus [Recovered/Resolved]
  - Hairy cell leukaemia [Not Recovered/Not Resolved]
  - Nausea [Recovered/Resolved]

NARRATIVE: CASE EVENT DATE: 2016
